FAERS Safety Report 7805565-5 (Version None)
Quarter: 2011Q4

REPORT INFORMATION
  Report Type: 
  Country: None (occurrence: None)
  Receive Date: 20111010
  Receipt Date: 20111006
  Transmission Date: 20120403
  Serious: Yes (Other)
  Sender: FDA-Public Use
  Company Number: CH-MERCK-1110USA00857

PATIENT
  Age: 22 Year
  Sex: Female

DRUGS (15)
  1. INVANZ [Suspect]
     Indication: OSTEOMYELITIS
     Route: 042
     Dates: start: 20110512, end: 20110512
  2. CLINDAMYCIN HCL [Concomitant]
     Route: 065
  3. CIPROFLAXACIN [Concomitant]
     Route: 042
     Dates: start: 20110507
  4. AUGMENTIN '125' [Concomitant]
     Route: 065
  5. ZYVOX [Concomitant]
     Route: 042
     Dates: start: 20110507
  6. GARAMYCIN [Concomitant]
     Route: 065
     Dates: start: 20110514, end: 20110613
  7. TARGOCID [Concomitant]
     Route: 042
     Dates: start: 20110514, end: 20110613
  8. SOLU-MEDROL [Concomitant]
     Route: 065
  9. CUBICIN [Concomitant]
     Route: 065
     Dates: start: 20110510, end: 20110511
  10. CIPROFLAXACIN [Concomitant]
     Route: 042
     Dates: start: 20110509
  11. TARGOCID [Concomitant]
     Indication: OSTEOMYELITIS
     Route: 042
     Dates: start: 20110512, end: 20110513
  12. ZYVOX [Concomitant]
     Route: 042
     Dates: start: 20110509
  13. ZYVOX [Concomitant]
     Route: 042
     Dates: start: 20110510
  14. CLEMASTINE FUMARATE [Concomitant]
     Route: 065
  15. GARAMYCIN [Concomitant]
     Route: 065
     Dates: start: 20110510, end: 20110511

REACTIONS (5)
  - HEADACHE [None]
  - TACHYCARDIA [None]
  - APNOEA [None]
  - HYPERVENTILATION [None]
  - NAUSEA [None]
